FAERS Safety Report 7443019-9 (Version None)
Quarter: 2011Q2

REPORT INFORMATION
  Report Type: 
  Country: None (occurrence: None)
  Receive Date: 20110420
  Receipt Date: 20110411
  Transmission Date: 20111010
  Serious: Yes (Hospitalization)
  Sender: FDA-Public Use
  Company Number: US-1185781

PATIENT

DRUGS (2)
  1. OMNIPRED [Concomitant]
  2. VIGAMOX [Suspect]
     Indication: CATARACT OPERATION
     Dosage: (4 GTT QID OPHTHALMIC)
     Route: 047
     Dates: start: 20110406, end: 20110409

REACTIONS (5)
  - TACHYCARDIA [None]
  - BLOOD PRESSURE INCREASED [None]
  - DIARRHOEA [None]
  - OEDEMA PERIPHERAL [None]
  - EAR DISCOMFORT [None]
